FAERS Safety Report 4945364-5 (Version None)
Quarter: 2006Q1

REPORT INFORMATION
  Report Type: 
  Country: None (occurrence: None)
  Receive Date: 20060315
  Receipt Date: 20060315
  Transmission Date: 20060701
  Serious: Yes (Life-Threatening)
  Sender: FDA-Public Use
  Company Number: None

PATIENT
  Age: 80 Year
  Sex: Male
  Weight: 56.246 kg

DRUGS (1)
  1. ZOSYN [Suspect]
     Indication: PNEUMONIA
     Dosage: 3.375 GM  IV  Q6-8HOURS
     Route: 042

REACTIONS (4)
  - EOSINOPHILS URINE PRESENT [None]
  - MENTAL STATUS CHANGES [None]
  - METABOLIC DISORDER [None]
  - RENAL IMPAIRMENT [None]
